FAERS Safety Report 9640249 (Version 1)
Quarter: 2013Q4

REPORT INFORMATION
  Report Type: Spontaneous
  Country: US (occurrence: None)
  Receive Date: 20131022
  Receipt Date: 20131022
  Transmission Date: 20140711
  Serious: Yes (Other)
  Sender: FDA-Public Use
  Company Number: None

PATIENT
  Age: 69 Year
  Sex: Female

DRUGS (2)
  1. OXYTROL FOR WOMEN [Suspect]
     Indication: HYPERTONIC BLADDER
     Dosage: 3.9 MG/DAY  1 PATCH/4 DAYS , 1 PATCH 4 DAYS  NIGHTS  ON THE SKIN - PATCH
     Dates: start: 20131007, end: 20131008
  2. LISINOPRIL 10 MG [Concomitant]

REACTIONS (4)
  - Headache [None]
  - Application site reaction [None]
  - Product adhesion issue [None]
  - Pollakiuria [None]
